FAERS Safety Report 4267982-2 (Version None)
Quarter: 2004Q1

REPORT INFORMATION
  Report Type: 
  Country: None (occurrence: None)
  Receive Date: 20040107
  Receipt Date: 20031014
  Transmission Date: 20041129
  Serious: Yes (Life-Threatening)
  Sender: FDA-Public Use
  Company Number: 2003AP03720

PATIENT
  Age: 50 Year
  Sex: Male

DRUGS (1)
  1. PROPOFOL [Suspect]
     Dosage: ALCOHOL WITHDRAWAL SYNDROME

REACTIONS (2)
  - DYSTONIA [None]
  - GRAND MAL CONVULSION [None]
